FAERS Safety Report 4980348-2 (Version None)
Quarter: 2006Q2

REPORT INFORMATION
  Report Type: 
  Country: None (occurrence: None)
  Receive Date: 20060418
  Receipt Date: 20060410
  Transmission Date: 20061013
  Serious: Yes (Other)
  Sender: FDA-Public Use
  Company Number: 2006050106

PATIENT
  Age: 29 Year
  Sex: Female
  Weight: 99.7913 kg

DRUGS (5)
  1. ZYRTEC-D 12 HOUR  (SEDUDOEPHEDRINE, CETIRIZINE/) [Suspect]
     Indication: MULTIPLE ALLERGIES
     Dosage: 10 MG/240 MG (2 IN 1 D)
  2. VERAPAMIL [Concomitant]
  3. PROTONIX [Concomitant]
  4. MONTELUKAST SODIUM (MONTELUKAST SODIUM) [Concomitant]
  5. VITAMINS (VITAMINS) [Concomitant]

REACTIONS (1)
  - COELIAC DISEASE [None]
